FAERS Safety Report 6632328-9 (Version None)
Quarter: 2010Q1

REPORT INFORMATION
  Report Type: 
  Country: None (occurrence: None)
  Receive Date: 20100312
  Receipt Date: 20100308
  Transmission Date: 20100710
  Serious: Yes (Hospitalization)
  Sender: FDA-Public Use
  Company Number: B0638174A

PATIENT
  Sex: Male

DRUGS (4)
  1. ZELITREX [Suspect]
     Indication: HERPES ZOSTER
     Dosage: 500MG THREE TIMES PER DAY
     Route: 048
     Dates: start: 20100131, end: 20100207
  2. ALLOPURINOL [Suspect]
     Indication: DRUG USE FOR UNKNOWN INDICATION
     Dosage: 1TAB PER DAY
     Route: 048
  3. RIVOTRIL [Suspect]
     Indication: HERPES ZOSTER
     Dosage: 10DROP PER DAY
     Route: 048
     Dates: start: 20100131, end: 20100207
  4. BIPRETERAX [Suspect]
     Indication: HYPERTENSION
     Dosage: 1TAB PER DAY
     Route: 048

REACTIONS (3)
  - DYSPNOEA [None]
  - ODYNOPHAGIA [None]
  - PALATAL OEDEMA [None]
